FAERS Safety Report 18339455 (Version 6)
Quarter: 2020Q4

REPORT INFORMATION
  Report Type: Spontaneous
  Country: US (occurrence: US)
  Receive Date: 20201002
  Receipt Date: 20201111
  Transmission Date: 20210113
  Serious: Yes (Other)
  Sender: FDA-Public Use
  Company Number: US-PFIZER INC-2020359504

PATIENT
  Age: 55 Year

DRUGS (1)
  1. EFFEXOR XR [Suspect]
     Active Substance: VENLAFAXINE HYDROCHLORIDE
     Dosage: 150 MG, 2X/DAY (300 MG A DAY)/300MG PER DAY

REACTIONS (4)
  - Malaise [Unknown]
  - Drug dependence [Unknown]
  - Nervousness [Unknown]
  - Prescribed overdose [Unknown]
